FAERS Safety Report 24890747 (Version 2)
Quarter: 2025Q1

REPORT INFORMATION
  Report Type: Spontaneous
  Country: US (occurrence: US)
  Receive Date: 20250127
  Receipt Date: 20250303
  Transmission Date: 20250408
  Serious: Yes (Hospitalization, Other)
  Sender: AMGEN
  Company Number: US-AMGEN-USASP2025014358

PATIENT
  Sex: Female

DRUGS (1)
  1. RAVICTI [Suspect]
     Active Substance: GLYCEROL PHENYLBUTYRATE
     Indication: Amino acid metabolism disorder
     Dosage: 2.8 MILLILITER, TID (1.1GM/ML)
     Route: 048
     Dates: start: 201902

REACTIONS (1)
  - Acute on chronic liver failure [Unknown]
